FAERS Safety Report 11585616 (Version 2)
Quarter: 2015Q4

REPORT INFORMATION
  Report Type: Spontaneous
  Country: GB (occurrence: GB)
  Receive Date: 20151001
  Receipt Date: 20151002
  Transmission Date: 20160304
  Serious: Yes (Death, Other)
  Sender: FDA-Public Use
  Company Number: GB-FRESENIUS KABI-FK201504661

PATIENT
  Age: 53 Year
  Sex: Male

DRUGS (15)
  1. ATENOLOL. [Suspect]
     Active Substance: ATENOLOL
     Indication: HYPERTENSION
     Route: 048
  2. MULTIVITAMIN [Concomitant]
     Active Substance: VITAMINS
     Route: 048
  3. MST CONTINUS [Concomitant]
     Active Substance: MORPHINE SULFATE
  4. ZAPONEX [Suspect]
     Active Substance: CLOZAPINE
     Indication: SCHIZOPHRENIA
     Dates: start: 20150510, end: 20150901
  5. ORAMORPH [Concomitant]
     Active Substance: MORPHINE SULFATE
  6. CISPLATIN (MANUFACTURER UNKNOWN) [Suspect]
     Active Substance: CISPLATIN
     Indication: NON-SMALL CELL LUNG CANCER STAGE IIIB
     Route: 065
  7. PHOLCODINE [Concomitant]
     Active Substance: PHOLCODINE
  8. VALPROATE SODIUM. [Concomitant]
     Active Substance: VALPROATE SODIUM
     Indication: MOOD SWINGS
     Route: 048
  9. VINORELBINE [Suspect]
     Active Substance: VINORELBINE\VINORELBINE TARTRATE
     Indication: NON-SMALL CELL LUNG CANCER STAGE IIIB
  10. NUTRITIONAL SUPPLEMENT [Concomitant]
     Active Substance: DIETARY SUPPLEMENT
     Indication: NUTRITIONAL SUPPLEMENTATION
     Route: 048
  11. EPHEDRINE HYDROCHLORIDE [Concomitant]
     Active Substance: EPHEDRINE HYDROCHLORIDE
  12. TIOTROPIUM [Concomitant]
     Active Substance: TIOTROPIUM
     Indication: INHALATION THERAPY
     Route: 048
  13. NICORETTE [Concomitant]
     Active Substance: NICOTINE
     Route: 048
  14. SALBUTAMOL [Concomitant]
     Active Substance: ALBUTEROL
     Route: 048
  15. SIMVASTATIN. [Concomitant]
     Active Substance: SIMVASTATIN
     Indication: BLOOD CHOLESTEROL INCREASED
     Route: 048

REACTIONS (7)
  - Product use issue [Not Recovered/Not Resolved]
  - White blood cell count decreased [Recovered/Resolved]
  - Infection [Fatal]
  - Neutropenia [Recovered/Resolved]
  - White blood cell count increased [Not Recovered/Not Resolved]
  - Neutropenic sepsis [Unknown]
  - Neutrophil count increased [Not Recovered/Not Resolved]

NARRATIVE: CASE EVENT DATE: 20140311
